FAERS Safety Report 7110405-6 (Version None)
Quarter: 2010Q4

REPORT INFORMATION
  Report Type: 
  Country: None (occurrence: None)
  Receive Date: 20101112
  Receipt Date: 20101028
  Transmission Date: 20110411
  Serious: Yes (Other)
  Sender: FDA-Public Use
  Company Number: 2010P1002203

PATIENT
  Age: 67 Year
  Sex: Female

DRUGS (1)
  1. FENTANYL-25 [Suspect]
     Indication: PAIN IN EXTREMITY
     Dosage: 25 MCG/HR; Q72H; TDER
     Route: 062
     Dates: start: 20100101

REACTIONS (1)
  - LUNG NEOPLASM MALIGNANT [None]
